FAERS Safety Report 4337026-2 (Version None)
Quarter: 2004Q1

REPORT INFORMATION
  Report Type: 
  Country: None (occurrence: None)
  Receive Date: 20040329
  Receipt Date: 20040116
  Transmission Date: 20041129
  Serious: No
  Sender: FDA-Public Use
  Company Number: USA040156890

PATIENT
  Age: 13 Year
  Sex: Female
  Weight: 33 kg

DRUGS (3)
  1. STRATTERA [Suspect]
     Indication: DISTURBANCE IN ATTENTION
     Dosage: 18 MG/AT BEDTIME
     Dates: start: 20040114
  2. LITHIUM [Concomitant]
  3. ZOLOFT [Concomitant]

REACTIONS (4)
  - DIZZINESS [None]
  - DYSSTASIA [None]
  - FATIGUE [None]
  - VISION BLURRED [None]
